FAERS Safety Report 8947302 (Version 1)
Quarter: 2012Q4

REPORT INFORMATION
  Report Type: 
  Country: FR (occurrence: FR)
  Receive Date: 20121205
  Receipt Date: 20121205
  Transmission Date: 20130627
  Serious: Yes (Hospitalization)
  Sender: FDA-Public Use
  Company Number: FR-ELI_LILLY_AND_COMPANY-FR201211007322

PATIENT
  Age: 50 Year
  Sex: Male

DRUGS (1)
  1. CYMBALTA [Suspect]
     Route: 048

REACTIONS (4)
  - Suicide attempt [Unknown]
  - Eye movement disorder [Unknown]
  - Malaise [Unknown]
  - Intentional overdose [Unknown]
